FAERS Safety Report 23862746 (Version 4)
Quarter: 2024Q3

REPORT INFORMATION
  Report Type: Spontaneous
  Country: US (occurrence: US)
  Receive Date: 20240516
  Receipt Date: 20240903
  Transmission Date: 20241017
  Serious: No
  Sender: PFIZER
  Company Number: US-PFIZER INC-202400107581

PATIENT
  Age: 12 Year
  Sex: Female

DRUGS (2)
  1. GENOTROPIN [Suspect]
     Active Substance: SOMATROPIN
     Indication: Growth hormone deficiency
     Dosage: ALTERNATES 1.4 AND 1.2MG SUBCUTANEOUS DAILY IN LEGS
     Route: 058
  2. GENOTROPIN [Suspect]
     Active Substance: SOMATROPIN
     Dosage: ALTERNATES 1.4 AND 1.2MG SUBCUTANEOUS DAILY IN LEGS
     Route: 058

REACTIONS (4)
  - Device breakage [Unknown]
  - Device physical property issue [Unknown]
  - Device malfunction [Unknown]
  - Drug dose omission by device [Unknown]
